FAERS Safety Report 9800658 (Version 2)
Quarter: 2014Q1

REPORT INFORMATION
  Report Type: Spontaneous
  Country: US (occurrence: US)
  Receive Date: 20140107
  Receipt Date: 20140131
  Transmission Date: 20141002
  Serious: No
  Sender: FDA-Public Use
  Company Number: US-009507513-1312USA012458

PATIENT
  Age: 46 Year
  Sex: Male

DRUGS (8)
  1. VICTRELIS [Suspect]
     Indication: MULTIPLE SCLEROSIS
     Dosage: UNK UNK, TID
     Route: 048
     Dates: start: 201312
  2. VICTRELIS [Suspect]
     Indication: OFF LABEL USE
  3. VICTRELIS [Suspect]
     Indication: HEPATITIS C
  4. PEGASYS [Suspect]
     Dosage: 180 MCG
  5. RIBAPAK [Suspect]
     Dosage: 600 MG
  6. ASPIRIN [Concomitant]
     Dosage: 81 MG, EC
  7. PRILOSEC [Concomitant]
     Dosage: 20 MG, OTC
  8. NEUPOGEN [Concomitant]

REACTIONS (8)
  - Weight decreased [Unknown]
  - Rash [Recovering/Resolving]
  - Abdominal discomfort [Unknown]
  - Off label use [Unknown]
  - Weight decreased [Unknown]
  - Nausea [Unknown]
  - Vomiting [Unknown]
  - Increased upper airway secretion [Unknown]
